FAERS Safety Report 14545881 (Version 4)
Quarter: 2023Q4

REPORT INFORMATION
  Report Type: Other
  Country: US (occurrence: None)
  Receive Date: 20180219
  Receipt Date: 20231003
  Transmission Date: 20240110
  Serious: Yes (Other)
  Sender: FDA-Public Use
  Company Number: US-ROCHE-2070032

PATIENT

DRUGS (3)
  1. RITUXIMAB [Suspect]
     Active Substance: RITUXIMAB
     Indication: Mantle cell lymphoma
     Dosage: FOR 4 DOSES DURING CYCLE 1 FOLLOWED BY ONCE ON DAY 1 FOR CYCLES 2 THROUGH 6, THEN EVERY OTHER CYCLE
     Route: 041
  2. IBRUTINIB [Suspect]
     Active Substance: IBRUTINIB
     Indication: Mantle cell lymphoma
     Dosage: DAILY ON DAYS 1-28 OF EACH CYCLE
     Route: 048
  3. LENALIDOMIDE [Suspect]
     Active Substance: LENALIDOMIDE
     Indication: Mantle cell lymphoma
     Dosage: 15-20 MG DAILY ON DAYS 1-21
     Route: 048

REACTIONS (22)
  - Neutropenia [Unknown]
  - Abdominal pain [Unknown]
  - Febrile neutropenia [Unknown]
  - Hypokalaemia [Unknown]
  - Rash [Unknown]
  - Pneumonia [Unknown]
  - Diarrhoea [Unknown]
  - Atrial fibrillation [Unknown]
  - Atrial flutter [Unknown]
  - Myocardial infarction [Unknown]
  - Pleural effusion [Unknown]
  - Hypertension [Unknown]
  - Syncope [Unknown]
  - Nervous system disorder [Unknown]
  - Hepatic enzyme increased [Unknown]
  - Osteomyelitis [Unknown]
  - Cellulitis [Unknown]
  - Sepsis [Unknown]
  - Respiratory failure [Unknown]
  - Pneumonia [Unknown]
  - Dizziness [Unknown]
  - Headache [Unknown]
